FAERS Safety Report 5640560-6 (Version None)
Quarter: 2008Q1

REPORT INFORMATION
  Report Type: 
  Country: None (occurrence: None)
  Receive Date: 20080227
  Receipt Date: 20080225
  Transmission Date: 20080703
  Serious: Yes (Other)
  Sender: FDA-Public Use
  Company Number: PHNU2008DE00764

PATIENT
  Age: 42 Year
  Sex: Female

DRUGS (2)
  1. RITALIN [Suspect]
     Dosage: 30 MG/DAY
     Route: 048
  2. CIPRAMIL [Concomitant]
     Dosage: UNKNOWN
     Route: 048

REACTIONS (6)
  - ATYPICAL MYCOBACTERIAL INFECTION [None]
  - BIOPSY LIVER ABNORMAL [None]
  - GRANULOMATOUS LIVER DISEASE [None]
  - HEPATIC ENZYME INCREASED [None]
  - POLYMERASE CHAIN REACTION [None]
  - SARCOIDOSIS [None]
